FAERS Safety Report 19476483 (Version 1)
Quarter: 2021Q2

REPORT INFORMATION
  Report Type: Spontaneous
  Country: JP (occurrence: JP)
  Receive Date: 20210630
  Receipt Date: 20210630
  Transmission Date: 20210717
  Serious: Yes (Life-Threatening, Other)
  Sender: FDA-Public Use
  Company Number: JP-AUROBINDO-AUR-APL-2021-027912

PATIENT
  Age: 80 Year
  Sex: Female

DRUGS (10)
  1. FOLOTYN [Suspect]
     Active Substance: PRALATREXATE
     Dosage: 30 MILLIGRAM/SQ. METER
     Route: 065
  2. LEUCOVORIN. [Concomitant]
     Active Substance: LEUCOVORIN
     Indication: PRODUCT USED FOR UNKNOWN INDICATION
     Dosage: UNK
     Route: 065
  3. FOLOTYN [Suspect]
     Active Substance: PRALATREXATE
     Dosage: 30 MILLIGRAM/SQ. METER
     Route: 065
  4. PREDNISOLONE. [Concomitant]
     Active Substance: PREDNISOLONE
     Indication: PRODUCT USED FOR UNKNOWN INDICATION
     Dosage: 100 MILLIGRAM/SQ. METER
     Route: 065
  5. CYCLOPHOSPHAMIDE. [Concomitant]
     Active Substance: CYCLOPHOSPHAMIDE
     Indication: PRODUCT USED FOR UNKNOWN INDICATION
     Dosage: 750 MILLIGRAM/SQ. METER
     Route: 065
  6. FOLOTYN [Suspect]
     Active Substance: PRALATREXATE
     Dosage: 30 MILLIGRAM/SQ. METER
     Route: 065
  7. FOLOTYN [Suspect]
     Active Substance: PRALATREXATE
     Dosage: 30 MILLIGRAM/SQ. METER
     Route: 065
  8. FOLOTYN [Suspect]
     Active Substance: PRALATREXATE
     Indication: ANGIOIMMUNOBLASTIC T-CELL LYMPHOMA STAGE III
     Dosage: 30 MILLIGRAM/SQ. METER
     Route: 065
  9. ADRIACIN [Concomitant]
     Active Substance: DOXORUBICIN HYDROCHLORIDE
     Indication: PRODUCT USED FOR UNKNOWN INDICATION
     Dosage: 50 MILLIGRAM/SQ. METER
     Route: 065
  10. VINCRISTINE [Concomitant]
     Active Substance: VINCRISTINE
     Indication: PRODUCT USED FOR UNKNOWN INDICATION
     Dosage: 1.4 MILLIGRAM/SQ. METER
     Route: 065

REACTIONS (7)
  - Anaemia [Unknown]
  - Epstein-Barr virus associated lymphoproliferative disorder [Unknown]
  - Neutrophil count decreased [Unknown]
  - Stomatitis [Unknown]
  - Febrile neutropenia [Unknown]
  - Herpes zoster [Unknown]
  - Platelet count decreased [Unknown]
